FAERS Safety Report 6767413-4 (Version None)
Quarter: 2010Q2

REPORT INFORMATION
  Report Type: 
  Country: None (occurrence: None)
  Receive Date: 20100610
  Receipt Date: 20100528
  Transmission Date: 20101027
  Serious: Yes (Hospitalization)
  Sender: FDA-Public Use
  Company Number: AMI0021562

PATIENT
  Age: 56 Year
  Sex: Male

DRUGS (8)
  1. TIMOPTIC [Suspect]
     Indication: OCULAR HYPERTENSION
     Dosage: BID - 046
     Dates: start: 20100415
  2. TIMOPTIC [Suspect]
     Indication: OPEN ANGLE GLAUCOMA
     Dosage: BID - 046
     Dates: start: 20100415
  3. TAFLUPROST 0.0015% (MK-2452) [Suspect]
     Indication: OCULAR HYPERTENSION
     Dosage: QD -046
     Dates: start: 20100415
  4. TAFLUPROST 0.0015% (MK-2452) [Suspect]
     Indication: OPEN ANGLE GLAUCOMA
     Dosage: QD -046
     Dates: start: 20100415
  5. ATENOLOL [Concomitant]
  6. HYDROCODONE [Concomitant]
  7. LISINOPRIL AND HYDROCHLOROTHIAZIDE [Concomitant]
  8. SIMVASTATIN [Concomitant]

REACTIONS (3)
  - ACCIDENT [None]
  - FALL [None]
  - JOINT DISLOCATION [None]
